FAERS Safety Report 22229036 (Version 1)
Quarter: 2023Q2

REPORT INFORMATION
  Report Type: Spontaneous
  Country: CN (occurrence: CN)
  Receive Date: 20230419
  Receipt Date: 20230419
  Transmission Date: 20230722
  Serious: Yes (Other)
  Sender: FDA-Public Use
  Company Number: None

PATIENT
  Age: 80 Year
  Sex: Female

DRUGS (3)
  1. CARBOPLATIN [Suspect]
     Active Substance: CARBOPLATIN
     Indication: Ovarian epithelial cancer
     Route: 033
     Dates: start: 20211214, end: 202202
  2. PACLITAXEL [Suspect]
     Active Substance: PACLITAXEL
     Indication: Ovarian epithelial cancer
     Route: 042
     Dates: start: 20211215, end: 202202
  3. PACLITAXEL [Suspect]
     Active Substance: PACLITAXEL
     Dosage: AS A SINGLE DRUG CHEMOTHERAPY
     Route: 042
     Dates: start: 20220315

REACTIONS (2)
  - Idiopathic pulmonary fibrosis [Recovered/Resolved]
  - Myelosuppression [Unknown]

NARRATIVE: CASE EVENT DATE: 20220101
